FAERS Safety Report 18456595 (Version 1)
Quarter: 2020Q4

REPORT INFORMATION
  Report Type: Other
  Country: GB (occurrence: GB)
  Receive Date: 20201103
  Receipt Date: 20201103
  Transmission Date: 20210114
  Serious: Yes (Other)
  Sender: FDA-Public Use
  Company Number: GB-STRIDES ARCOLAB LIMITED-2020SP013204

PATIENT
  Age: 14 Year
  Sex: Male

DRUGS (1)
  1. ETHOSUXIMIDE. [Suspect]
     Active Substance: ETHOSUXIMIDE
     Indication: EPILEPSY
     Dosage: 250MG/5ML SYRUP
     Route: 065

REACTIONS (1)
  - Petit mal epilepsy [Unknown]
